FAERS Safety Report 17440816 (Version 1)
Quarter: 2020Q1

REPORT INFORMATION
  Report Type: Spontaneous
  Country: US (occurrence: US)
  Receive Date: 20200220
  Receipt Date: 20200220
  Transmission Date: 20200409
  Serious: No
  Sender: FDA-Public Use
  Company Number: None

PATIENT
  Sex: Male

DRUGS (1)
  1. DIAZEPAM 5 MG [Suspect]
     Active Substance: DIAZEPAM

REACTIONS (1)
  - Drug hypersensitivity [None]
